FAERS Safety Report 11145459 (Version 7)
Quarter: 2015Q3

REPORT INFORMATION
  Report Type: Report from Study
  Country: US (occurrence: US)
  Receive Date: 20150528
  Receipt Date: 20150727
  Transmission Date: 20151125
  Serious: Yes (Hospitalization)
  Sender: FDA-Public Use
  Company Number: US-SA-2015SA067673

PATIENT
  Age: 36 Year
  Sex: Male
  Weight: 112.2 kg

DRUGS (6)
  1. FABRAZYME [Suspect]
     Active Substance: AGALSIDASE BETA
     Indication: FABRY^S DISEASE
     Dosage: C4362Y01: USED 1?E4031Y03: USED 3
     Route: 041
     Dates: start: 20121212
  2. FABRAZYME [Suspect]
     Active Substance: AGALSIDASE BETA
     Indication: FABRY^S DISEASE
     Dosage: C4362Y01: USED 1?E4031Y03: USED 3
     Route: 041
     Dates: start: 20121212
  3. ASPIRIN. [Concomitant]
     Active Substance: ASPIRIN
     Route: 048
  4. CALCIUM CARBONATE. [Concomitant]
     Active Substance: CALCIUM CARBONATE
     Route: 048
  5. VITAMIN D [Concomitant]
     Active Substance: CHOLECALCIFEROL
  6. CROMOLYN [Concomitant]
     Active Substance: CROMOLYN
     Dosage: STRENGTH: 20 MG/ML
     Route: 048

REACTIONS (17)
  - Headache [Not Recovered/Not Resolved]
  - Fluid retention [Unknown]
  - Urinary tract infection [Unknown]
  - Disease progression [Unknown]
  - Infusion related reaction [Recovered/Resolved]
  - Poor quality sleep [Unknown]
  - Nausea [Recovering/Resolving]
  - Feeling abnormal [Unknown]
  - Fatigue [Unknown]
  - Neuropathy peripheral [Unknown]
  - Swelling face [Unknown]
  - Somnolence [Unknown]
  - Renal disorder [Unknown]
  - Peripheral swelling [Unknown]
  - Vomiting [Recovering/Resolving]
  - Decreased appetite [Unknown]
  - Back pain [Unknown]

NARRATIVE: CASE EVENT DATE: 20150419
